FAERS Safety Report 14814893 (Version 1)
Quarter: 2018Q2

REPORT INFORMATION
  Report Type: Spontaneous
  Country: DE (occurrence: DE)
  Receive Date: 20180426
  Receipt Date: 20180426
  Transmission Date: 20180711
  Serious: Yes (Hospitalization)
  Sender: FDA-Public Use
  Company Number: DE-SA-2018SA117487

PATIENT
  Age: 77 Year
  Sex: Female
  Weight: 78 kg

DRUGS (8)
  1. METFORMIN [Concomitant]
     Active Substance: METFORMIN HYDROCHLORIDE
     Dosage: 0-0-1-0
     Route: 048
  2. SIMVASTATIN. [Concomitant]
     Active Substance: SIMVASTATIN
     Dosage: 0-0-0.5-0
     Route: 048
  3. ASPIRIN. [Concomitant]
     Active Substance: ASPIRIN
     Dosage: 0-0-1-0
     Route: 048
  4. OMEP [Concomitant]
     Active Substance: OMEPRAZOLE
     Dosage: 40 MG EVERY SECOND DAY, 1-0-0-0, TABLETS
     Route: 048
  5. RAMIPRIL. [Concomitant]
     Active Substance: RAMIPRIL
     Dosage: 0.5-0-0-0
     Route: 048
  6. GLIMEPIRIDE. [Suspect]
     Active Substance: GLIMEPIRIDE
     Dosage: 1-0-0-0
     Route: 048
  7. RISPERIDONE. [Concomitant]
     Active Substance: RISPERIDONE
     Dosage: 0-0-0.5-0
     Route: 048
  8. VESIKUR [Concomitant]
     Active Substance: SOLIFENACIN SUCCINATE
     Dosage: 1-0-0-0
     Route: 048

REACTIONS (5)
  - Disorientation [Unknown]
  - General physical health deterioration [Unknown]
  - Diarrhoea [Unknown]
  - Hypoglycaemia [Unknown]
  - Fall [Unknown]
